FAERS Safety Report 8811103 (Version 2)
Quarter: 2012Q4

REPORT INFORMATION
  Report Type: 
  Country: US (occurrence: US)
  Receive Date: 20120927
  Receipt Date: 20121206
  Transmission Date: 20130627
  Serious: Yes (Hospitalization)
  Sender: FDA-Public Use
  Company Number: US-009507513-1204USA04305

PATIENT
  Age: 65 Year
  Sex: Male
  Weight: 74.84 kg

DRUGS (4)
  1. DEXAMETHASONE [Suspect]
     Indication: MULTIPLE MYELOMA
     Dosage: 40mg, Days 2,5,9,12 q 21 days
     Route: 048
     Dates: start: 20111005
  2. DECADRON [Suspect]
     Indication: MULTIPLE MYELOMA
     Dosage: 40 mg, Days 1,4,8,11 q 21 days
     Route: 042
     Dates: start: 20111024
  3. VELCADE [Suspect]
     Indication: MULTIPLE MYELOMA
     Dosage: 2.5 mg, Days 1,4,8 and 11 q 21 days
     Route: 042
     Dates: start: 20111004
  4. CYTOXAN [Suspect]
     Indication: MULTIPLE MYELOMA
     Dosage: 1750 mg, Day 1 q 21 days
     Route: 042
     Dates: start: 20111004

REACTIONS (2)
  - Diverticulitis [Recovered/Resolved]
  - Diverticulitis [Unknown]
